FAERS Safety Report 4822990-5 (Version None)
Quarter: 2005Q4

REPORT INFORMATION
  Report Type: 
  Country: None (occurrence: None)
  Receive Date: 20051108
  Receipt Date: 20051027
  Transmission Date: 20060501
  Serious: Yes (Death, Congenital Anomaly)
  Sender: FDA-Public Use
  Company Number: US-JNJFOC-20051100246

PATIENT

DRUGS (1)
  1. ELMIRON [Suspect]

REACTIONS (1)
  - TRISOMY 21 [None]
